FAERS Safety Report 8855074 (Version 1)
Quarter: 2012Q4

REPORT INFORMATION
  Report Type: Report from Study
  Country: GR (occurrence: GR)
  Receive Date: 20121023
  Receipt Date: 20121023
  Transmission Date: 20130627
  Serious: Yes (Death)
  Sender: FDA-Public Use
  Company Number: GR-ABBOTT-12P-066-0996646-00

PATIENT
  Age: 82 Year
  Sex: Female
  Weight: 60.9 kg

DRUGS (7)
  1. ZEMPLAR [Suspect]
     Indication: RENAL FAILURE CHRONIC
     Dosage: 15mcg / week
     Route: 042
     Dates: start: 20120106, end: 20120714
  2. LANTHANUM [Concomitant]
     Indication: HYPERPHOSPHATAEMIA
     Route: 048
     Dates: start: 20111103, end: 20120804
  3. LASIX [Concomitant]
     Indication: ANURIA
     Route: 048
  4. SUPERAMIN [Concomitant]
     Indication: ANAEMIA
     Route: 042
     Dates: start: 20111103, end: 20120804
  5. VITAMIN B COMPLEX [Concomitant]
     Indication: ANAEMIA
     Route: 042
     Dates: start: 20111103, end: 20120804
  6. ARANESP [Concomitant]
     Indication: ANAEMIA
     Route: 042
     Dates: start: 20111103, end: 20120804
  7. LOPRESSOR [Concomitant]
     Indication: ATRIAL FIBRILLATION
     Dosage: 1/4 twice daily
     Route: 048
     Dates: start: 20111103, end: 20120804

REACTIONS (1)
  - Death [Fatal]
